FAERS Safety Report 22087498 (Version 2)
Quarter: 2023Q1

REPORT INFORMATION
  Report Type: Spontaneous
  Country: US (occurrence: US)
  Receive Date: 20230313
  Receipt Date: 20230316
  Transmission Date: 20230418
  Serious: Yes (Hospitalization)
  Sender: FDA-Public Use
  Company Number: US-NOVOPROD-1035217

PATIENT
  Age: 64 Year
  Sex: Female

DRUGS (2)
  1. OZEMPIC [Suspect]
     Active Substance: SEMAGLUTIDE
     Indication: Weight decreased
     Dosage: 1 MG, QW
     Route: 058
     Dates: start: 20210420, end: 202302
  2. OZEMPIC [Suspect]
     Active Substance: SEMAGLUTIDE
     Dosage: 2 MG, QW
     Route: 058
     Dates: start: 202302, end: 20230212

REACTIONS (2)
  - Immune thrombocytopenia [Not Recovered/Not Resolved]
  - Product use in unapproved indication [Recovered/Resolved]

NARRATIVE: CASE EVENT DATE: 20210420
